FAERS Safety Report 13848193 (Version 1)
Quarter: 2017Q3

REPORT INFORMATION
  Report Type: Spontaneous
  Country: US (occurrence: US)
  Receive Date: 20170808
  Receipt Date: 20170808
  Transmission Date: 20171127
  Serious: Yes (Hospitalization, Disabling)
  Sender: FDA-Public Use
  Company Number: None

PATIENT
  Age: 46 Year
  Sex: Female
  Weight: 110.32 kg

DRUGS (2)
  1. COPPER IUD [Suspect]
     Active Substance: COPPER
  2. TRU VIT DAILY VIT C [Concomitant]

REACTIONS (5)
  - Palpitations [None]
  - Depression [None]
  - Blood copper increased [None]
  - Anxiety [None]
  - Alopecia [None]

NARRATIVE: CASE EVENT DATE: 20160303
